FAERS Safety Report 14556584 (Version 1)
Quarter: 2018Q1

REPORT INFORMATION
  Report Type: Spontaneous
  Country: CZ (occurrence: CZ)
  Receive Date: 20180221
  Receipt Date: 20180221
  Transmission Date: 20180509
  Serious: Yes (Other)
  Sender: FDA-Public Use
  Company Number: CZ-ROCHE-2071424

PATIENT
  Age: 45 Year
  Sex: Female

DRUGS (1)
  1. ZELBORAF [Suspect]
     Active Substance: VEMURAFENIB
     Indication: MALIGNANT MELANOMA STAGE IV
     Route: 065

REACTIONS (6)
  - Metastases to lymph nodes [Unknown]
  - Metastases to central nervous system [Unknown]
  - Haemorrhage [Recovering/Resolving]
  - Intestinal metastasis [Recovered/Resolved]
  - Metastases to ovary [Unknown]
  - Metastases to lung [Unknown]
